FAERS Safety Report 23969493 (Version 1)
Quarter: 2024Q2

REPORT INFORMATION
  Report Type: Report from Study
  Country: CA (occurrence: CA)
  Receive Date: 20240612
  Receipt Date: 20240612
  Transmission Date: 20240715
  Serious: Yes (Other)
  Sender: FDA-Public Use
  Company Number: CA-JNJFOC-20230461653

PATIENT
  Age: 69 Year
  Sex: Female
  Weight: 73 kg

DRUGS (4)
  1. SIMPONI [Suspect]
     Active Substance: GOLIMUMAB
     Indication: Rheumatoid arthritis
     Route: 041
     Dates: start: 20160920
  2. SIMPONI [Suspect]
     Active Substance: GOLIMUMAB
     Indication: Ankylosing spondylitis
     Route: 041
     Dates: start: 20230816
  3. SIMPONI [Suspect]
     Active Substance: GOLIMUMAB
     Route: 041
  4. INSULIN NOS [Concomitant]
     Active Substance: INSULIN NOS

REACTIONS (22)
  - Abdominal hernia [Unknown]
  - Nasal congestion [Recovering/Resolving]
  - Gastroenteritis [Recovered/Resolved]
  - Arthralgia [Not Recovered/Not Resolved]
  - Joint stiffness [Not Recovered/Not Resolved]
  - Wound [Recovered/Resolved]
  - Contusion [Unknown]
  - Asthenia [Unknown]
  - Hypoglycaemia [Recovered/Resolved]
  - Fatigue [Not Recovered/Not Resolved]
  - Fall [Unknown]
  - Arthralgia [Not Recovered/Not Resolved]
  - Back pain [Not Recovered/Not Resolved]
  - Escherichia urinary tract infection [Not Recovered/Not Resolved]
  - Lumbar hernia [Unknown]
  - Seasonal allergy [Unknown]
  - Productive cough [Unknown]
  - Insomnia [Unknown]
  - Rhinorrhoea [Unknown]
  - Sinus congestion [Unknown]
  - Pain in extremity [Unknown]
  - Sputum discoloured [Unknown]

NARRATIVE: CASE EVENT DATE: 20230101
